FAERS Safety Report 23933662 (Version 1)
Quarter: 2024Q2

REPORT INFORMATION
  Report Type: Spontaneous
  Country: CN (occurrence: CN)
  Receive Date: 20240603
  Receipt Date: 20240603
  Transmission Date: 20240715
  Serious: Yes (Hospitalization)
  Sender: FDA-Public Use
  Company Number: CN-AMGEN-CHNSP2024104457

PATIENT
  Age: 22 Year
  Sex: Female

DRUGS (4)
  1. BLINCYTO [Suspect]
     Active Substance: BLINATUMOMAB
     Indication: Acute lymphocytic leukaemia
     Dosage: 17.5 MICROGRAM (1), DRIP
     Route: 042
     Dates: start: 20240508, end: 20240508
  2. BLINCYTO [Suspect]
     Active Substance: BLINATUMOMAB
     Dosage: 17.5 MICROGRAM, DRIP
     Route: 042
     Dates: start: 20240510, end: 20240510
  3. SODIUM CHLORIDE [Concomitant]
     Active Substance: SODIUM CHLORIDE
     Dosage: UNK, DRIP
     Route: 042
     Dates: start: 20240508, end: 20240508
  4. SODIUM CHLORIDE [Concomitant]
     Active Substance: SODIUM CHLORIDE
     Dosage: UNK, DRIP
     Route: 042
     Dates: start: 20240510, end: 20240510

REACTIONS (2)
  - Epilepsy [Recovering/Resolving]
  - Altered state of consciousness [Recovering/Resolving]

NARRATIVE: CASE EVENT DATE: 20240510
